FAERS Safety Report 14212995 (Version 1)
Quarter: 2017Q4

REPORT INFORMATION
  Report Type: Spontaneous
  Country: US (occurrence: US)
  Receive Date: 20171122
  Receipt Date: 20171122
  Transmission Date: 20180321
  Serious: No
  Sender: FDA-Public Use
  Company Number: None

PATIENT
  Age: 25 Year
  Sex: Male
  Weight: 63 kg

DRUGS (1)
  1. DOXYLAMINE SUCCINATE 25 MG 441 [Suspect]
     Active Substance: DOXYLAMINE SUCCINATE
     Indication: SLEEP DISORDER
     Dosage: ?          QUANTITY:96 TABLET(S);?
     Route: 048
     Dates: start: 20170905, end: 20171122

REACTIONS (2)
  - Sleep terror [None]
  - Hallucination [None]

NARRATIVE: CASE EVENT DATE: 20171121
